FAERS Safety Report 7409557-X (Version None)
Quarter: 2011Q2

REPORT INFORMATION
  Report Type: 
  Country: None (occurrence: None)
  Receive Date: 20110412
  Receipt Date: 20110404
  Transmission Date: 20111010
  Serious: Yes (Hospitalization)
  Sender: FDA-Public Use
  Company Number: US-MERCK-1103USA02904

PATIENT
  Age: 76 Year
  Sex: Female

DRUGS (4)
  1. LASIX [Concomitant]
     Route: 065
  2. COZAAR [Suspect]
     Route: 048
  3. COREG [Suspect]
     Route: 065
  4. ALDACTONE [Suspect]
     Route: 065

REACTIONS (3)
  - FLUID RETENTION [None]
  - CONFUSIONAL STATE [None]
  - MENTAL IMPAIRMENT [None]
